FAERS Safety Report 7052219-1 (Version None)
Quarter: 2010Q4

REPORT INFORMATION
  Report Type: 
  Country: None (occurrence: None)
  Receive Date: 20101018
  Receipt Date: 20101018
  Transmission Date: 20110411
  Serious: Yes (Life-Threatening)
  Sender: FDA-Public Use
  Company Number: None

PATIENT
  Age: 43 Year
  Sex: Female
  Weight: 54.4316 kg

DRUGS (2)
  1. SINGULAIR [Suspect]
     Indication: MULTIPLE ALLERGIES
     Dosage: 10 MG 1X DAY PO
     Route: 048
     Dates: start: 20100820, end: 20101016
  2. SINGULAIR [Suspect]
     Indication: SINUS DISORDER
     Dosage: 10 MG 1X DAY PO
     Route: 048
     Dates: start: 20100820, end: 20101016

REACTIONS (6)
  - AGITATION [None]
  - ANXIETY [None]
  - DEPRESSION [None]
  - PARANOIA [None]
  - RESTLESSNESS [None]
  - SUICIDAL IDEATION [None]
